FAERS Safety Report 25050848 (Version 5)
Quarter: 2025Q4

REPORT INFORMATION
  Report Type: Spontaneous
  Country: US (occurrence: US)
  Receive Date: 20250307
  Receipt Date: 20251119
  Transmission Date: 20260117
  Serious: No
  Sender: BRISTOL-MYERS SQUIBB COMPANY
  Company Number: US-BRISTOL-MYERS SQUIBB COMPANY-2025-034298

PATIENT
  Age: 75 Year
  Sex: Female

DRUGS (2)
  1. REVLIMID [Suspect]
     Active Substance: LENALIDOMIDE
     Indication: Plasma cell myeloma
     Dosage: QD X 21D, 7D OFF
     Route: 048
  2. REVLIMID [Suspect]
     Active Substance: LENALIDOMIDE
     Indication: Anaemia of malignant disease

REACTIONS (7)
  - Pancreatic cyst [Unknown]
  - Hypoaesthesia [Unknown]
  - Headache [Unknown]
  - Sacral pain [Unknown]
  - Product dose omission issue [Unknown]
  - Bradycardia [Unknown]
  - Red blood cell abnormality [Unknown]
